FAERS Safety Report 25885891 (Version 1)
Quarter: 2025Q4

REPORT INFORMATION
  Report Type: Spontaneous
  Country: US (occurrence: US)
  Receive Date: 20251006
  Receipt Date: 20251006
  Transmission Date: 20260118
  Serious: Yes (Other)
  Sender: FERRING
  Company Number: US-FERRINGPH-2025FE05752

PATIENT

DRUGS (1)
  1. ADSTILADRIN [Suspect]
     Active Substance: NADOFARAGENE FIRADENOVEC-VNCG
     Indication: Bladder cancer
     Dosage: TWO QUARTERLY TREATMENTS
     Route: 065

REACTIONS (1)
  - Carcinoma in situ [Unknown]
